FAERS Safety Report 7139051-5 (Version None)
Quarter: 2010Q4

REPORT INFORMATION
  Report Type: 
  Country: None (occurrence: None)
  Receive Date: 20101206
  Receipt Date: 20101124
  Transmission Date: 20110411
  Serious: Yes (Hospitalization)
  Sender: FDA-Public Use
  Company Number: A0897736A

PATIENT
  Age: 70 Year
  Sex: Male

DRUGS (1)
  1. AVANDIA [Suspect]
     Dosage: 4MG PER DAY
     Route: 065
     Dates: start: 20020801, end: 20080401

REACTIONS (5)
  - CEREBROVASCULAR ACCIDENT [None]
  - DEAFNESS [None]
  - DIZZINESS [None]
  - TINNITUS [None]
  - VERTIGO [None]
